FAERS Safety Report 4299926-1 (Version None)
Quarter: 2004Q1

REPORT INFORMATION
  Report Type: 
  Country: None (occurrence: None)
  Receive Date: 20040220
  Receipt Date: 20040217
  Transmission Date: 20041129
  Serious: Yes (Hospitalization)
  Sender: FDA-Public Use
  Company Number: 200410654FR

PATIENT
  Age: 83 Year
  Sex: Male

DRUGS (9)
  1. LASILIX [Suspect]
     Route: 048
     Dates: end: 20030901
  2. ZESTRIL [Suspect]
     Route: 048
     Dates: end: 20030905
  3. ALDALIX [Suspect]
     Route: 048
     Dates: start: 20030815, end: 20030905
  4. RISPERDAL [Concomitant]
  5. ASPIRIN [Concomitant]
  6. BROMAZEPAM BIOGALENIQUE [Concomitant]
  7. CIFLOX [Concomitant]
  8. TARDYFERON [Concomitant]
     Route: 048
  9. NITROGLYCERIN [Concomitant]
     Route: 023

REACTIONS (2)
  - HYPERKALAEMIA [None]
  - HYPONATRAEMIA [None]
